FAERS Safety Report 8330936-0 (Version None)
Quarter: 2012Q2

REPORT INFORMATION
  Report Type: 
  Country: None (occurrence: None)
  Receive Date: 20120502
  Receipt Date: 20120403
  Transmission Date: 20120825
  Serious: No
  Sender: FDA-Public Use
  Company Number: US-AMGEN-USASP2012021229

PATIENT
  Age: 33 Year
  Sex: Male

DRUGS (1)
  1. ENBREL [Suspect]
     Indication: PSORIATIC ARTHROPATHY
     Dosage: EVERY 8 TO 10 DAYS
     Route: 058
     Dates: start: 20090815

REACTIONS (1)
  - DIARRHOEA [None]
